FAERS Safety Report 9850008 (Version 2)
Quarter: 2014Q1

REPORT INFORMATION
  Report Type: Spontaneous
  Country: US (occurrence: US)
  Receive Date: 20140128
  Receipt Date: 20140129
  Transmission Date: 20141002
  Serious: No
  Sender: FDA-Public Use
  Company Number: US-TEVA-458640USA

PATIENT
  Age: 45 Year
  Sex: Female

DRUGS (2)
  1. PARAGARD 380A [Suspect]
     Indication: CONTRACEPTION
     Route: 015
     Dates: start: 1997, end: 2014
  2. PARAGARD 380A [Suspect]
     Route: 015
     Dates: start: 2014

REACTIONS (2)
  - Medical device complication [Unknown]
  - Expired device used [Recovered/Resolved]
